FAERS Safety Report 4485862-4 (Version None)
Quarter: 2004Q3

REPORT INFORMATION
  Report Type: 
  Country: None (occurrence: None)
  Receive Date: 20040921
  Receipt Date: 20030918
  Transmission Date: 20050211
  Serious: Yes (Hospitalization)
  Sender: FDA-Public Use
  Company Number: 163-20785-03090533

PATIENT
  Age: 47 Year
  Sex: Female
  Weight: 47.27 kg

DRUGS (8)
  1. THALOMID [Suspect]
     Indication: METASTASES TO CENTRAL NERVOUS SYSTEM
     Dosage: 200 MG, QD, ORAL; SEE IMAGE
     Route: 048
     Dates: start: 20030826, end: 20030916
  2. THALOMID [Suspect]
     Indication: METASTASES TO CENTRAL NERVOUS SYSTEM
     Dosage: 200 MG, QD, ORAL; SEE IMAGE
     Route: 048
     Dates: start: 20030915, end: 20030916
  3. RADIATION THERAPY (CAPSULES) [Suspect]
     Indication: METASTASES TO CENTRAL NERVOUS SYSTEM
     Dosage: 2.56 GY, DAYS 1-5, ORAL
     Route: 048
  4. OXYCONTIN [Concomitant]
  5. OXYCODONE (OXYCODONE) [Concomitant]
  6. PEPCID [Concomitant]
  7. DECADRON [Concomitant]
  8. RITALIN [Concomitant]

REACTIONS (10)
  - BACTERAEMIA [None]
  - CONVULSION [None]
  - DISEASE PROGRESSION [None]
  - HYPOKALAEMIA [None]
  - HYPONATRAEMIA [None]
  - HYPOPHOSPHATAEMIA [None]
  - INAPPROPRIATE ANTIDIURETIC HORMONE SECRETION [None]
  - LYMPHOPENIA [None]
  - NEUTROPENIA [None]
  - THROMBOCYTOPENIA [None]
